FAERS Safety Report 7351075-1 (Version None)
Quarter: 2011Q1

REPORT INFORMATION
  Report Type: 
  Country: None (occurrence: None)
  Receive Date: 20110314
  Receipt Date: 20110228
  Transmission Date: 20110831
  Serious: Yes (Other)
  Sender: FDA-Public Use
  Company Number: US-BAYER-201035819NA

PATIENT
  Sex: Female

DRUGS (10)
  1. ZYRTEC [Concomitant]
     Route: 048
  2. KLONOPIN [Concomitant]
     Route: 048
  3. ULTRACET [Concomitant]
     Route: 048
  4. LEVAQUIN [Concomitant]
     Dosage: UNK
     Route: 048
     Dates: start: 20060516
  5. YASMIN [Suspect]
     Indication: CONTRACEPTION
     Route: 048
     Dates: start: 20050101, end: 20100428
  6. YAZ [Suspect]
     Indication: CONTRACEPTION
     Dosage: UNK UNK, UNK
     Route: 048
  7. ACIPHEX [Concomitant]
     Route: 048
  8. OCELLA [Suspect]
     Dosage: UNK UNK, UNK
     Route: 048
  9. PROZAC [Concomitant]
     Route: 048
  10. FLONASE [Concomitant]
     Route: 048

REACTIONS (2)
  - CEREBROVASCULAR ACCIDENT [None]
  - GALLBLADDER DISORDER [None]
